FAERS Safety Report 16669738 (Version 1)
Quarter: 2019Q3

REPORT INFORMATION
  Report Type: Spontaneous
  Country: US (occurrence: US)
  Receive Date: 20190805
  Receipt Date: 20190805
  Transmission Date: 20191004
  Serious: Yes (Death, Other)
  Sender: FDA-Public Use
  Company Number: PHHY2019US181249

PATIENT
  Age: 59 Year
  Sex: Male

DRUGS (5)
  1. PREDNISONE. [Suspect]
     Active Substance: PREDNISONE
     Dosage: 20 MG, QD
     Route: 065
  2. PREDNISONE. [Suspect]
     Active Substance: PREDNISONE
     Dosage: 50 MG, QD
     Route: 065
  3. PREDNISONE. [Suspect]
     Active Substance: PREDNISONE
     Dosage: 80 MG, QD
     Route: 065
  4. PREDNISONE. [Suspect]
     Active Substance: PREDNISONE
     Dosage: 40 MG, QD
     Route: 065
  5. PREDNISONE. [Suspect]
     Active Substance: PREDNISONE
     Indication: VASCULITIS
     Dosage: 60 MG, QD
     Route: 065

REACTIONS (15)
  - Neurologic neglect syndrome [Fatal]
  - Cerebral infarction [Fatal]
  - Aphasia [Fatal]
  - Hemiplegia [Fatal]
  - Ischaemic stroke [Fatal]
  - Confusional state [Fatal]
  - Disturbance in attention [Fatal]
  - Extensor plantar response [Fatal]
  - Pain [Fatal]
  - Seizure [Unknown]
  - Headache [Fatal]
  - Stenosis [Fatal]
  - Substance-induced psychotic disorder [Unknown]
  - Temporal arteritis [Fatal]
  - Gaze palsy [Fatal]
